FAERS Safety Report 4926232-1 (Version None)
Quarter: 2006Q1

REPORT INFORMATION
  Report Type: 
  Country: None (occurrence: None)
  Receive Date: 20060228
  Receipt Date: 20051213
  Transmission Date: 20060701
  Serious: No
  Sender: FDA-Public Use
  Company Number: US-GLAXOSMITHKLINE-A0585685A

PATIENT
  Sex: Female

DRUGS (4)
  1. LAMICTAL [Suspect]
     Indication: BIPOLAR DISORDER
     Dosage: 300MG PER DAY
     Route: 048
  2. TYLENOL (CAPLET) [Concomitant]
  3. XANAX [Concomitant]
  4. METHADONE [Concomitant]

REACTIONS (4)
  - DEPRESSION [None]
  - EATING DISORDER [None]
  - FATIGUE [None]
  - WEIGHT DECREASED [None]
